FAERS Safety Report 5501191-1 (Version None)
Quarter: 2007Q4

REPORT INFORMATION
  Report Type: 
  Country: None (occurrence: None)
  Receive Date: 20071026
  Receipt Date: 20071012
  Transmission Date: 20080405
  Serious: Yes (Other)
  Sender: FDA-Public Use
  Company Number: US021266

PATIENT
  Age: 72 Year
  Sex: Female
  Weight: 104.3273 kg

DRUGS (7)
  1. PROVIGIL [Suspect]
     Indication: NARCOLEPSY
     Dosage: 200 MG QD ORAL
     Route: 048
     Dates: start: 20000101, end: 20070901
  2. PROVIGIL [Suspect]
     Indication: NARCOLEPSY
     Dosage: 200 MG BID ORAL
     Route: 048
     Dates: start: 20070914
  3. LISINOPRIL [Concomitant]
  4. GLUCOPHAGE [Concomitant]
  5. DITROPAN XL [Concomitant]
  6. LAMISIL [Concomitant]
  7. ALLOPURINOL [Concomitant]

REACTIONS (9)
  - DERMATITIS CONTACT [None]
  - DRUG INEFFECTIVE [None]
  - OEDEMA MOUTH [None]
  - ORAL DISCOMFORT [None]
  - PHOTOSENSITIVITY REACTION [None]
  - RASH ERYTHEMATOUS [None]
  - RASH PRURITIC [None]
  - STOMATITIS [None]
  - SWELLING FACE [None]
